FAERS Safety Report 8664546 (Version 2)
Quarter: 2013Q4

REPORT INFORMATION
  Report Type: Spontaneous
  Country: JP (occurrence: JP)
  Receive Date: 20120713
  Receipt Date: 20131107
  Transmission Date: 20140711
  Serious: Yes (Other)
  Sender: FDA-Public Use
  Company Number: JP-009507513-1207JPN003544

PATIENT
  Sex: 0

DRUGS (3)
  1. PEGINTRON [Suspect]
     Route: 058
  2. REBETOL [Suspect]
     Route: 048
  3. TELAVIC [Suspect]
     Route: 048

REACTIONS (2)
  - Loss of consciousness [Unknown]
  - Vomiting [Unknown]
